FAERS Safety Report 4736368-6 (Version None)
Quarter: 2005Q3

REPORT INFORMATION
  Report Type: 
  Country: None (occurrence: None)
  Receive Date: 20050802
  Receipt Date: 20050721
  Transmission Date: 20060218
  Serious: Yes (Hospitalization)
  Sender: FDA-Public Use
  Company Number: 2005105566

PATIENT
  Sex: Female
  Weight: 122.4712 kg

DRUGS (3)
  1. CELEBREX [Suspect]
     Indication: ARTHRALGIA
     Dosage: ORAL
     Route: 048
  2. DARVOCET [Suspect]
     Indication: ILL-DEFINED DISORDER
  3. RELAFEN [Suspect]
     Indication: ILL-DEFINED DISORDER
     Dates: start: 20050714

REACTIONS (7)
  - ARTHRALGIA [None]
  - DEPRESSION [None]
  - DRUG INEFFECTIVE [None]
  - DYSPNOEA [None]
  - ECONOMIC PROBLEM [None]
  - PANIC ATTACK [None]
  - WALKING AID USER [None]
